FAERS Safety Report 9274421 (Version 1)
Quarter: 2013Q2

REPORT INFORMATION
  Report Type: Spontaneous
  Country: US (occurrence: US)
  Receive Date: 20130506
  Receipt Date: 20130506
  Transmission Date: 20140414
  Serious: No
  Sender: FDA-Public Use
  Company Number: US-009507513-1305USA001299

PATIENT
  Age: 28 Year
  Sex: 0
  Weight: 63.39 kg

DRUGS (2)
  1. NEXPLANON [Suspect]
     Dosage: 1 DF, UNK
     Dates: start: 20130501, end: 20130501
  2. IMPLANON [Concomitant]
     Dosage: 1 DF, UNK
     Dates: start: 20130501

REACTIONS (2)
  - Device difficult to use [Unknown]
  - No adverse event [Unknown]
